APPROVED DRUG PRODUCT: YAZ
Active Ingredient: DROSPIRENONE; ETHINYL ESTRADIOL
Strength: 3MG;0.02MG
Dosage Form/Route: TABLET;ORAL
Application: N021676 | Product #001 | TE Code: AB
Applicant: BAYER HEALTHCARE PHARMACEUTICALS INC
Approved: Mar 16, 2006 | RLD: Yes | RS: Yes | Type: RX